FAERS Safety Report 13314151 (Version 1)
Quarter: 2017Q1

REPORT INFORMATION
  Report Type: Spontaneous
  Country: SI (occurrence: SI)
  Receive Date: 20170309
  Receipt Date: 20170309
  Transmission Date: 20170428
  Serious: Yes (Other)
  Sender: FDA-Public Use
  Company Number: SI-BAYER-2017-024404

PATIENT
  Sex: Female
  Weight: 65 kg

DRUGS (5)
  1. STIVARGA [Suspect]
     Active Substance: REGORAFENIB
     Dosage: 160 MG, QD
     Route: 048
     Dates: start: 201412
  2. STIVARGA [Suspect]
     Active Substance: REGORAFENIB
     Dosage: 120 MG, QD
     Route: 048
  3. STIVARGA [Suspect]
     Active Substance: REGORAFENIB
     Dosage: 80 MG, QD
     Route: 048
  4. STIVARGA [Suspect]
     Active Substance: REGORAFENIB
     Dosage: 2-5 CYCLE: 120 MG/DAY
     Route: 048
  5. STIVARGA [Suspect]
     Active Substance: REGORAFENIB
     Dosage: UNK
     Route: 048
     Dates: start: 201603, end: 201603

REACTIONS (15)
  - Skin exfoliation [None]
  - Thrombocytopenia [Recovered/Resolved]
  - Fatigue [None]
  - Colorectal cancer metastatic [None]
  - Metastases to lung [None]
  - Carcinoembryonic antigen increased [None]
  - Hyperkeratosis [None]
  - Skin disorder [None]
  - Pyrexia [Recovered/Resolved]
  - Neutrophil count abnormal [Recovered/Resolved]
  - Palmar-plantar erythrodysaesthesia syndrome [None]
  - Fatigue [None]
  - Thrombocytopenia [Recovered/Resolved]
  - C-reactive protein increased [Recovered/Resolved]
  - Pain [None]

NARRATIVE: CASE EVENT DATE: 201412
